FAERS Safety Report 6651917-9 (Version None)
Quarter: 2010Q1

REPORT INFORMATION
  Report Type: 
  Country: None (occurrence: None)
  Receive Date: 20100325
  Receipt Date: 20100316
  Transmission Date: 20100710
  Serious: Yes (Other)
  Sender: FDA-Public Use
  Company Number: CH-JNJFOC-20100304578

PATIENT
  Age: 19 Year
  Sex: Female

DRUGS (2)
  1. ITRACONAZOL [Suspect]
     Indication: ANTIFUNGAL PROPHYLAXIS
  2. METHYLPREDNISOLONE [Interacting]
     Indication: DRUG USE FOR UNKNOWN INDICATION
     Route: 065

REACTIONS (2)
  - CUSHING'S SYNDROME [None]
  - DRUG INTERACTION [None]
